FAERS Safety Report 8908763 (Version 1)
Quarter: 2012Q4

REPORT INFORMATION
  Report Type: 
  Country: US (occurrence: US)
  Receive Date: 20121114
  Receipt Date: 20121114
  Transmission Date: 20130627
  Serious: Yes (Other)
  Sender: FDA-Public Use
  Company Number: PHHY2012US104440

PATIENT
  Age: 82 Year
  Sex: Female

DRUGS (2)
  1. BUFFERIN REGULAR STRENGTH [Suspect]
     Indication: PAIN
     Dosage: 1 DF, UNK
     Route: 048
  2. SYNTHYROID [Concomitant]
     Indication: THYROID DISORDER
     Dosage: 1 DF, QD
     Route: 048

REACTIONS (5)
  - Upper limb fracture [Recovered/Resolved]
  - Hip fracture [Recovered/Resolved]
  - Ligament sprain [Recovered/Resolved]
  - Back pain [Not Recovered/Not Resolved]
  - Incorrect drug administration duration [Unknown]
